FAERS Safety Report 7650401-3 (Version None)
Quarter: 2011Q3

REPORT INFORMATION
  Report Type: 
  Country: None (occurrence: None)
  Receive Date: 20110802
  Receipt Date: 20110720
  Transmission Date: 20111222
  Serious: Yes (Hospitalization)
  Sender: FDA-Public Use
  Company Number: US-GLAXOSMITHKLINE-A0747354A

PATIENT
  Age: 53 Year
  Sex: Female
  Weight: 145.9 kg

DRUGS (13)
  1. ATENOLOL [Concomitant]
     Dates: start: 19880101
  2. GLUCOPHAGE [Concomitant]
     Dates: start: 19960101, end: 20030101
  3. ADVAIR DISKUS 100/50 [Concomitant]
     Indication: ASTHMA
  4. GLARGINE [Concomitant]
     Dates: start: 20030101
  5. PRILOSEC [Concomitant]
  6. CRESTOR [Concomitant]
     Dates: start: 20060101, end: 20070101
  7. METFORMIN HCL [Concomitant]
     Dates: start: 19960101, end: 20030101
  8. LIPITOR [Concomitant]
     Dates: start: 20040101, end: 20070101
  9. AVANDIA [Suspect]
     Indication: TYPE 2 DIABETES MELLITUS
     Dosage: 4MG PER DAY
     Route: 048
     Dates: start: 20020101, end: 20070101
  10. SINGULAIR [Concomitant]
  11. GLUCOTROL [Concomitant]
     Dates: start: 19960101, end: 20030101
  12. BYETTA [Concomitant]
     Dates: start: 20050101, end: 20060101
  13. ALBUTEROL SULFATE AUTOHALER [Concomitant]

REACTIONS (2)
  - CARDIAC FAILURE CONGESTIVE [None]
  - MYOCARDIAL ISCHAEMIA [None]
